FAERS Safety Report 5773467-4 (Version None)
Quarter: 2008Q2

REPORT INFORMATION
  Report Type: 
  Country: None (occurrence: None)
  Receive Date: 20080616
  Receipt Date: 20080605
  Transmission Date: 20081010
  Serious: Yes (Hospitalization)
  Sender: FDA-Public Use
  Company Number: US-BAYER-200818396NA

PATIENT
  Age: 85 Year
  Sex: Male

DRUGS (1)
  1. AVELOX [Suspect]
     Indication: COUGH
     Dosage: TOTAL DAILY DOSE: 400 MG  UNIT DOSE: 400 MG
     Route: 048
     Dates: start: 20080325

REACTIONS (4)
  - ANAEMIA [None]
  - DEHYDRATION [None]
  - ORAL INTAKE REDUCED [None]
  - URINE OUTPUT DECREASED [None]
